FAERS Safety Report 10153489 (Version 5)
Quarter: 2018Q4

REPORT INFORMATION
  Report Type: Spontaneous
  Country: JP (occurrence: JP)
  Receive Date: 20140505
  Receipt Date: 20181011
  Transmission Date: 20190204
  Serious: Yes (Hospitalization)
  Sender: FDA-Public Use
  Company Number: PHHY2014JP051545

PATIENT
  Age: 77 Year
  Sex: Female

DRUGS (3)
  1. ZOMETA [Suspect]
     Active Substance: ZOLEDRONIC ACID
     Indication: METASTASES TO BONE
  2. ZOMETA [Suspect]
     Active Substance: ZOLEDRONIC ACID
     Indication: METASTASES TO SPINE
     Dosage: 4 MG, UNK
     Route: 041
  3. ZOMETA [Suspect]
     Active Substance: ZOLEDRONIC ACID
     Indication: BREAST CANCER RECURRENT

REACTIONS (5)
  - Bone formation decreased [Unknown]
  - Atypical femur fracture [Recovered/Resolved]
  - Bone pain [Recovered/Resolved]
  - Exostosis [Recovered/Resolved]
  - Bone disorder [Unknown]
